FAERS Safety Report 18750292 (Version 1)
Quarter: 2021Q1

REPORT INFORMATION
  Report Type: Spontaneous
  Country: IT (occurrence: IT)
  Receive Date: 20210118
  Receipt Date: 20210118
  Transmission Date: 20210419
  Serious: Yes (Other)
  Sender: FDA-Public Use
  Company Number: IT-SUN PHARMACEUTICAL INDUSTRIES LTD-2021RR-275632

PATIENT
  Age: 91 Year
  Sex: Female

DRUGS (3)
  1. TRANEXAMIC ACID. [Suspect]
     Active Substance: TRANEXAMIC ACID
     Indication: GASTROINTESTINAL HAEMORRHAGE
     Dosage: UNK
     Route: 065
  2. OCTREOTIDE. [Suspect]
     Active Substance: OCTREOTIDE
     Indication: GASTROINTESTINAL HAEMORRHAGE
     Dosage: 0.05 MG TO 0.1 MG S.C. TID
     Route: 065
  3. MESALAZINE [Suspect]
     Active Substance: MESALAMINE
     Indication: GASTROINTESTINAL HAEMORRHAGE
     Dosage: UNK
     Route: 065

REACTIONS (2)
  - Nausea [Unknown]
  - Therapy non-responder [Unknown]
